FAERS Safety Report 5653838-7 (Version None)
Quarter: 2008Q1

REPORT INFORMATION
  Report Type: 
  Country: None (occurrence: None)
  Receive Date: 20080306
  Receipt Date: 20080217
  Transmission Date: 20080703
  Serious: Yes (Death, Hospitalization, Other)
  Sender: FDA-Public Use
  Company Number: US-BAYER-200814434GPV

PATIENT

DRUGS (7)
  1. APROTININ [Suspect]
     Indication: THORACIC OPERATION
     Route: 042
  2. APROTININ [Suspect]
     Route: 042
  3. APROTININ [Suspect]
     Route: 042
  4. HEPARIN [Concomitant]
     Indication: ANTICOAGULANT THERAPY
     Route: 042
  5. PROTAMINE SULFATE [Concomitant]
     Indication: DRUG USE FOR UNKNOWN INDICATION
     Route: 042
  6. ANGIOTENSIN CONVERTING ENZYME INHIBITORS [Concomitant]
     Indication: DRUG USE FOR UNKNOWN INDICATION
     Route: 065
  7. CONTRAST AGENTS [Concomitant]
     Indication: DRUG USE FOR UNKNOWN INDICATION
     Route: 042

REACTIONS (8)
  - CARDIAC DEATH [None]
  - CEREBROVASCULAR ACCIDENT [None]
  - HAEMORRHAGE [None]
  - MULTI-ORGAN FAILURE [None]
  - MYOCARDIAL INFARCTION [None]
  - RENAL FAILURE [None]
  - RENAL IMPAIRMENT [None]
  - RESPIRATORY FAILURE [None]
